FAERS Safety Report 5255992-8 (Version None)
Quarter: 2007Q1

REPORT INFORMATION
  Report Type: 
  Country: None (occurrence: None)
  Receive Date: 20070302
  Receipt Date: 20070302
  Transmission Date: 20070707
  Serious: No
  Sender: FDA-Public Use
  Company Number: None

PATIENT
  Age: 37 Year
  Sex: Male
  Weight: 65.7716 kg

DRUGS (1)
  1. COLACE 100MG BID [Suspect]
     Indication: CONSTIPATION
     Dosage: COLACE

REACTIONS (1)
  - DRUG INEFFECTIVE [None]
